FAERS Safety Report 24755227 (Version 1)
Quarter: 2024Q4

REPORT INFORMATION
  Report Type: Spontaneous
  Country: US (occurrence: None)
  Receive Date: 20241218
  Receipt Date: 20241218
  Transmission Date: 20250115
  Serious: Yes (Life-Threatening, Hospitalization)
  Sender: Public
  Company Number: None

PATIENT
  Age: 41 Year
  Sex: Male

DRUGS (2)
  1. NAPROXEN [Suspect]
     Active Substance: NAPROXEN
     Dosage: FREQUENCY : TWICE A DAY;?
     Route: 048
     Dates: start: 20221116, end: 20221117
  2. LISINOPRIL [Suspect]
     Active Substance: LISINOPRIL

REACTIONS (1)
  - Angioedema [None]

NARRATIVE: CASE EVENT DATE: 20221117
